FAERS Safety Report 4622273-2 (Version None)
Quarter: 2005Q1

REPORT INFORMATION
  Report Type: 
  Country: None (occurrence: None)
  Receive Date: 20050324
  Receipt Date: 20050324
  Transmission Date: 20050727
  Serious: No
  Sender: FDA-Public Use
  Company Number: None

PATIENT
  Sex: Female
  Weight: 7.699 kg

DRUGS (9)
  1. METHOTREXATE [Suspect]
     Indication: ACUTE LYMPHOCYTIC LEUKAEMIA
     Dosage: 7.5 MG INTRATHECAL
     Route: 037
     Dates: start: 20050209, end: 20050311
  2. METHOTREXATE [Suspect]
     Indication: PROPHYLAXIS
     Dosage: 7.5 MG INTRATHECAL
     Route: 037
     Dates: start: 20050209, end: 20050311
  3. CYTARABINE [Suspect]
     Indication: ACUTE LYMPHOCYTIC LEUKAEMIA
     Dosage: 15MG  INTRATHECAL
     Route: 037
     Dates: start: 20050209, end: 20050311
  4. CYTARABINE [Suspect]
     Indication: PROPHYLAXIS
     Dosage: 15MG  INTRATHECAL
     Route: 037
     Dates: start: 20050209, end: 20050311
  5. CHEMOTHERAPY [Concomitant]
  6. CEFEPIME [Concomitant]
  7. VANC [Concomitant]
  8. TIT THERAPY [Concomitant]
  9. LEUCOVORIN CALCIUM [Concomitant]

REACTIONS (3)
  - CONVULSION [None]
  - SIMPLE PARTIAL SEIZURES [None]
  - TREMOR [None]
